FAERS Safety Report 10429852 (Version 1)
Quarter: 2014Q3

REPORT INFORMATION
  Report Type: Spontaneous
  Country: US (occurrence: None)
  Receive Date: 20140902
  Receipt Date: 20140902
  Transmission Date: 20150326
  Serious: Yes (Life-Threatening, Hospitalization, Other)
  Sender: FDA-Public Use
  Company Number: None

PATIENT
  Age: 62 Year
  Sex: Female

DRUGS (4)
  1. WARFARIN SODIUM. [Concomitant]
     Active Substance: WARFARIN SODIUM
  2. LEXAPRO [Suspect]
     Active Substance: ESCITALOPRAM OXALATE
     Indication: ANXIETY
     Dosage: 10 MG HALVED 1/2 TABLE/ 6 DAYS ONCE A DAY BY MOUTH
     Route: 048
     Dates: start: 20130731, end: 20130915
  3. VITAMIN D [Concomitant]
     Active Substance: CHOLECALCIFEROL
  4. VITAMIN D [Concomitant]
     Active Substance: CHOLECALCIFEROL

REACTIONS (2)
  - Pulmonary embolism [None]
  - Chest pain [None]

NARRATIVE: CASE EVENT DATE: 20131223
